FAERS Safety Report 12186582 (Version 1)
Quarter: 2016Q1

REPORT INFORMATION
  Report Type: Spontaneous
  Country: US (occurrence: US)
  Receive Date: 20160317
  Receipt Date: 20160317
  Transmission Date: 20160526
  Serious: Yes (Hospitalization)
  Sender: FDA-Public Use
  Company Number: US-FRESENIUS KABI-FK201601300

PATIENT
  Age: 44 Year
  Sex: Female

DRUGS (13)
  1. RISPERIDONE. [Suspect]
     Active Substance: RISPERIDONE
     Indication: SCHIZOAFFECTIVE DISORDER BIPOLAR TYPE
     Route: 030
  2. CLOZAPINE. [Suspect]
     Active Substance: CLOZAPINE
     Route: 065
  3. VALPROATE [Suspect]
     Active Substance: VALPROIC ACID
     Indication: SCHIZOAFFECTIVE DISORDER BIPOLAR TYPE
     Route: 030
  4. VALPROATE [Suspect]
     Active Substance: VALPROIC ACID
     Route: 065
  5. RISPERIDONE. [Suspect]
     Active Substance: RISPERIDONE
     Indication: INTELLECTUAL DISABILITY
     Route: 030
  6. CLOZAPINE. [Suspect]
     Active Substance: CLOZAPINE
     Route: 065
  7. CLOZAPINE. [Suspect]
     Active Substance: CLOZAPINE
     Indication: PSYCHOTIC DISORDER
     Route: 065
  8. BENZATROPINE [Suspect]
     Active Substance: BENZTROPINE
     Indication: SCHIZOAFFECTIVE DISORDER BIPOLAR TYPE
     Route: 030
  9. VALPROATE [Suspect]
     Active Substance: VALPROIC ACID
     Indication: INTELLECTUAL DISABILITY
     Route: 030
  10. RISPERIDONE. [Suspect]
     Active Substance: RISPERIDONE
     Route: 030
  11. BENZATROPINE [Suspect]
     Active Substance: BENZTROPINE
     Indication: INTELLECTUAL DISABILITY
  12. CLOZAPINE. [Suspect]
     Active Substance: CLOZAPINE
     Route: 065
  13. METOPROLOL INJECTION (MANUFACTURER UNKNOWN) [Suspect]
     Active Substance: METOPROLOL
     Indication: TACHYCARDIA
     Route: 065

REACTIONS (6)
  - Drug interaction [Unknown]
  - Pneumonia [Unknown]
  - Brain injury [Not Recovered/Not Resolved]
  - Off label use [Unknown]
  - Myocarditis [Unknown]
  - Atrial fibrillation [Recovered/Resolved]
